FAERS Safety Report 9416526 (Version 1)
Quarter: 2013Q3

REPORT INFORMATION
  Report Type: Spontaneous
  Country: US (occurrence: US)
  Receive Date: 20130719
  Receipt Date: 20130719
  Transmission Date: 20140515
  Serious: Yes (Hospitalization)
  Sender: FDA-Public Use
  Company Number: 2013P1011967

PATIENT
  Age: 32 Year
  Sex: Male

DRUGS (5)
  1. VANCOMYCIN [Suspect]
     Indication: MENINGITIS STAPHYLOCOCCAL
     Route: 042
  2. PIOGLITAZONE [Concomitant]
  3. ROSUVASTATIN [Concomitant]
  4. MONTELUKAST [Concomitant]
  5. BUDESONIDE/FORMOTEROL [Concomitant]

REACTIONS (2)
  - Meningitis eosinophilic [None]
  - Type IV hypersensitivity reaction [None]
